FAERS Safety Report 8976269 (Version 1)
Quarter: 2012Q4

REPORT INFORMATION
  Report Type: 
  Country: FR (occurrence: FR)
  Receive Date: 20121220
  Receipt Date: 20121220
  Transmission Date: 20130627
  Serious: Yes (Hospitalization)
  Sender: FDA-Public Use
  Company Number: FR-JNJFOC-20121207670

PATIENT
  Age: 82 Year
  Sex: Female

DRUGS (9)
  1. REMINYL [Suspect]
     Indication: DEMENTIA ALZHEIMER^S TYPE
     Route: 048
     Dates: start: 201103, end: 20121117
  2. PROCORALAN [Suspect]
     Indication: PRODUCT USED FOR UNKNOWN INDICATION
     Route: 048
     Dates: end: 20121116
  3. ADENURIC [Suspect]
     Indication: PRODUCT USED FOR UNKNOWN INDICATION
     Route: 048
     Dates: end: 20121117
  4. ESIDREX [Concomitant]
     Route: 065
  5. ATACAND [Concomitant]
     Route: 065
  6. HYPERIUM [Concomitant]
     Route: 065
  7. SERESTA [Concomitant]
     Route: 065
  8. NORSET [Concomitant]
     Route: 065
  9. SOLIAN [Concomitant]
     Route: 065

REACTIONS (3)
  - Bradycardia [Recovered/Resolved with Sequelae]
  - Atrioventricular block second degree [Recovered/Resolved with Sequelae]
  - Hypertensive crisis [Unknown]
